FAERS Safety Report 14771838 (Version 4)
Quarter: 2018Q2

REPORT INFORMATION
  Report Type: Spontaneous
  Country: US (occurrence: US)
  Receive Date: 20180417
  Receipt Date: 20180608
  Transmission Date: 20180711
  Serious: Yes (Death, Hospitalization)
  Sender: FDA-Public Use
  Company Number: US-ACTELION-A-NJ2018-170669

PATIENT
  Age: 31 Year
  Sex: Female

DRUGS (1)
  1. TRACLEER [Suspect]
     Active Substance: BOSENTAN
     Indication: PULMONARY ARTERIAL HYPERTENSION
     Dosage: 125 MG, BID
     Route: 048
     Dates: end: 20180413

REACTIONS (5)
  - Pulmonary hypertension [Fatal]
  - Disease progression [Fatal]
  - Urinary tract infection [Unknown]
  - Arrhythmia [Fatal]
  - Dehydration [Unknown]
